FAERS Safety Report 19281415 (Version 2)
Quarter: 2021Q2

REPORT INFORMATION
  Report Type: Spontaneous
  Country: FR (occurrence: FR)
  Receive Date: 20210520
  Receipt Date: 20210614
  Transmission Date: 20210717
  Serious: Yes (Hospitalization, Other)
  Sender: FDA-Public Use
  Company Number: FR-PURDUE-USA-2021-0261836

PATIENT
  Age: 72 Year
  Sex: Female

DRUGS (7)
  1. OXAZEPAM. [Suspect]
     Active Substance: OXAZEPAM
     Indication: ANXIETY
     Dosage: 90 MG, DAILY
     Route: 048
     Dates: start: 20201005
  2. CARTEOL                            /00853401/ [Concomitant]
     Active Substance: BENZALKONIUM CHLORIDE\CARTEOLOL HYDROCHLORIDE
     Dosage: 1 UNIT, DAILY
     Dates: start: 201909
  3. OXYCODONE HYDROCHLORIDE. [Suspect]
     Active Substance: OXYCODONE HYDROCHLORIDE
     Indication: PAIN
     Dosage: 5 MG, DAILY
     Route: 048
     Dates: start: 202008
  4. ZYMAD [Suspect]
     Active Substance: CHOLECALCIFEROL
     Indication: VITAMIN D DEFICIENCY
     Dosage: 1 UNIT, DAILY
     Route: 048
     Dates: start: 20200912
  5. MIRTAZAPINE. [Suspect]
     Active Substance: MIRTAZAPINE
     Indication: DEPRESSION
     Dosage: 30 MG, DAILY
     Route: 048
     Dates: start: 20201005
  6. ZOPICLONE [Concomitant]
     Active Substance: ZOPICLONE
     Dosage: 7.5 MG, DAILY
     Route: 048
     Dates: start: 20210121, end: 20210311
  7. TERIPARATIDE [Suspect]
     Active Substance: TERIPARATIDE
     Indication: OSTEOPOROSIS
     Dosage: 20 MG, DAILY
     Route: 058
     Dates: start: 202009

REACTIONS (2)
  - Paraesthesia oral [Not Recovered/Not Resolved]
  - Hallucination, synaesthetic [Not Recovered/Not Resolved]

NARRATIVE: CASE EVENT DATE: 202102
